FAERS Safety Report 5871124-7 (Version None)
Quarter: 2008Q3

REPORT INFORMATION
  Report Type: 
  Country: None (occurrence: None)
  Receive Date: 20080904
  Receipt Date: 20080823
  Transmission Date: 20090109
  Serious: Yes (Other)
  Sender: FDA-Public Use
  Company Number: US-PFIZER INC-2008071622

PATIENT
  Sex: Male

DRUGS (3)
  1. CHANTIX [Suspect]
  2. ANTIDEPRESSANTS [Concomitant]
     Indication: DEPRESSION
  3. ANALGESICS [Concomitant]
     Indication: PAIN

REACTIONS (7)
  - BALANCE DISORDER [None]
  - DISORIENTATION [None]
  - DYSARTHRIA [None]
  - GAIT DISTURBANCE [None]
  - INCONTINENCE [None]
  - MOTOR DYSFUNCTION [None]
  - SPEECH DISORDER [None]
